FAERS Safety Report 4269152-0 (Version None)
Quarter: 2004Q1

REPORT INFORMATION
  Report Type: 
  Country: None (occurrence: None)
  Receive Date: 20040109
  Receipt Date: 20040102
  Transmission Date: 20041129
  Serious: Yes (Hospitalization)
  Sender: FDA-Public Use
  Company Number: 230237M03USA

PATIENT
  Age: 64 Year
  Sex: Female
  Weight: 86.4 kg

DRUGS (1)
  1. REBIF [Suspect]
     Indication: MULTIPLE SCLEROSIS
     Dosage: 2 IN 1 WEEKS, SUBCUTANEOUS
     Route: 058

REACTIONS (7)
  - ARRHYTHMIA [None]
  - CONDITION AGGRAVATED [None]
  - INFLUENZA LIKE ILLNESS [None]
  - MULTIPLE SCLEROSIS [None]
  - PALPITATIONS [None]
  - TACHYCARDIA [None]
  - VENTRICULAR TACHYCARDIA [None]
